FAERS Safety Report 9934777 (Version 1)
Quarter: 2014Q1

REPORT INFORMATION
  Report Type: Spontaneous
  Country: US (occurrence: US)
  Receive Date: 20140228
  Receipt Date: 20140228
  Transmission Date: 20141002
  Serious: Yes (Death)
  Sender: FDA-Public Use
  Company Number: US-GLAXOSMITHKLINE-A1061898A

PATIENT
  Age: 70 Year
  Sex: Female

DRUGS (2)
  1. ARIXTRA [Suspect]
     Indication: DEEP VEIN THROMBOSIS
     Dosage: 7.5MG UNKNOWN
     Route: 058
     Dates: start: 201304
  2. UNKNOWN [Concomitant]

REACTIONS (1)
  - Malignant neoplasm progression [Fatal]
